FAERS Safety Report 6998376-4 (Version None)
Quarter: 2010Q3

REPORT INFORMATION
  Report Type: 
  Country: None (occurrence: None)
  Receive Date: 20100920
  Receipt Date: 20100907
  Transmission Date: 20110219
  Serious: Yes (Other)
  Sender: FDA-Public Use
  Company Number: GB-JNJFOC-20100902864

PATIENT
  Sex: Male

DRUGS (1)
  1. REMICADE [Suspect]
     Indication: AUTOIMMUNE DISORDER
     Dosage: INFUSION RATE OF 120 ML PER HOUR
     Route: 042

REACTIONS (1)
  - DEAFNESS [None]
